FAERS Safety Report 9155043 (Version 2)
Quarter: 2013Q2

REPORT INFORMATION
  Report Type: Spontaneous
  Country: BR (occurrence: BR)
  Receive Date: 20130311
  Receipt Date: 20130415
  Transmission Date: 20140414
  Serious: Yes (Hospitalization, Other)
  Sender: FDA-Public Use
  Company Number: PHHY2013BR023592

PATIENT
  Age: 82 Year
  Sex: Female
  Weight: 84 kg

DRUGS (7)
  1. DIOVAN [Suspect]
     Dosage: 1 DF, (320 MG) PER DAY
     Route: 048
     Dates: end: 201301
  2. FUROSEMID//FUROSEMIDE [Concomitant]
     Indication: FLUID RETENTION
     Dosage: 2 DF, A DAY
     Route: 048
  3. T4 [Concomitant]
     Indication: THYROID DISORDER
     Dosage: 1 DF, A DAY
     Route: 048
  4. CARVEDILOL [Concomitant]
     Dosage: 2 DF, A DAY
     Route: 048
  5. AMLODIPINE [Concomitant]
     Dosage: 2 DF, A DAY
     Route: 048
  6. GABANEURIN [Concomitant]
     Indication: PAIN IN EXTREMITY
     Dosage: 1 DF, A DAY
     Route: 048
  7. SIMVASTATIN [Concomitant]
     Dosage: 1 DF, A DAY
     Route: 048

REACTIONS (4)
  - Thrombosis [Recovering/Resolving]
  - Urinary tract infection [Recovering/Resolving]
  - Pathogen resistance [Unknown]
  - Bronchitis [Recovering/Resolving]
